FAERS Safety Report 5121817-4 (Version None)
Quarter: 2006Q4

REPORT INFORMATION
  Report Type: 
  Country: None (occurrence: None)
  Receive Date: 20061003
  Receipt Date: 20060922
  Transmission Date: 20070319
  Serious: Yes (Hospitalization)
  Sender: FDA-Public Use
  Company Number: FR-2006-005794

PATIENT
  Age: 47 Year
  Sex: Female

DRUGS (4)
  1. BETAFERON [Suspect]
     Indication: RELAPSING-REMITTING MULTIPLE SCLEROSIS
     Dosage: 500 UG, EVERY 2D, SUBCUTANEOUS
     Route: 058
     Dates: start: 20040519
  2. CARTEOLOL (CARTEOLOL) [Concomitant]
  3. ORAL CONTRACEPTIVE NOS           (ORAL CONTRACEPTIVE NOS) [Concomitant]
  4. PROGESTOGEL [Concomitant]

REACTIONS (4)
  - METRORRHAGIA [None]
  - OVARIAN CYST [None]
  - OVARIAN FIBROMA [None]
  - PELVIC PAIN [None]
